FAERS Safety Report 7766888-1 (Version None)
Quarter: 2011Q3

REPORT INFORMATION
  Report Type: 
  Country: None (occurrence: None)
  Receive Date: 20110922
  Receipt Date: 20110915
  Transmission Date: 20111222
  Serious: No
  Sender: FDA-Public Use
  Company Number: US-PFIZER INC-2011219520

PATIENT
  Sex: Male
  Weight: 77.098 kg

DRUGS (10)
  1. TRAZODONE [Concomitant]
     Indication: SLEEP DISORDER
  2. OXYCODONE HYDROCHLORIDE [Suspect]
     Indication: BACK PAIN
     Dosage: UNK
  3. OXYCODONE HYDROCHLORIDE [Suspect]
     Indication: ANXIETY
  4. MORPHINE [Concomitant]
     Indication: PAIN
     Dosage: UNK
  5. TRAZODONE [Concomitant]
     Indication: DEPRESSION
     Dosage: UNK
  6. LYRICA [Suspect]
     Indication: BACK PAIN
     Dosage: 75 MG, 1X/DAY
     Route: 048
     Dates: start: 20110912
  7. OXYCODONE HYDROCHLORIDE [Suspect]
     Indication: PAIN
  8. LYRICA [Suspect]
     Indication: BIPOLAR DISORDER
  9. LYRICA [Suspect]
     Indication: ANXIETY
  10. LYRICA [Suspect]
     Indication: PAIN

REACTIONS (3)
  - INSOMNIA [None]
  - PRURITUS [None]
  - HEADACHE [None]
